FAERS Safety Report 17665666 (Version 1)
Quarter: 2020Q2

REPORT INFORMATION
  Report Type: Spontaneous
  Country: US (occurrence: US)
  Receive Date: 20200414
  Receipt Date: 20200414
  Transmission Date: 20200713
  Serious: Yes (Other)
  Sender: FDA-Public Use
  Company Number: US-SUNOVION-2020SUN001152

PATIENT
  Sex: Female

DRUGS (1)
  1. BROVANA [Suspect]
     Active Substance: ARFORMOTEROL TARTRATE
     Indication: PULMONARY FIBROSIS
     Dosage: 15 ?G/2ML, BID
     Route: 055

REACTIONS (2)
  - Off label use [Unknown]
  - Neoplasm malignant [Not Recovered/Not Resolved]
